FAERS Safety Report 17528222 (Version 2)
Quarter: 2020Q2

REPORT INFORMATION
  Report Type: Report from Study
  Country: None (occurrence: NL)
  Receive Date: 20200311
  Receipt Date: 20200601
  Transmission Date: 20200713
  Serious: Yes (Other)
  Sender: FDA-Public Use
  Company Number: NL-ABBVIE-19S-114-2773291-00

PATIENT
  Sex: Male
  Weight: 128 kg

DRUGS (12)
  1. AMILORIDE + HIDROCLOROTIAZIDA [Concomitant]
     Active Substance: AMILORIDE HYDROCHLORIDE\HYDROCHLOROTHIAZIDE
     Indication: PRODUCT USED FOR UNKNOWN INDICATION
     Dosage: 5/50 MG
  2. DUODOPA [Suspect]
     Active Substance: CARBIDOPA\LEVODOPA
     Indication: PARKINSON^S DISEASE
     Dosage: MD: 3.5, CD: 2.8, ED: 1.0
     Route: 050
     Dates: start: 20190323, end: 2019
  3. DUODOPA [Suspect]
     Active Substance: CARBIDOPA\LEVODOPA
     Dosage: MD: 3.5, CD: 3.9, ED: 1.0
     Route: 050
  4. MOVICOLON [Concomitant]
     Active Substance: POLYETHYLENE GLYCOL 3350\POTASSIUM CHLORIDE\SODIUM BICARBONATE\SODIUM CHLORIDE
     Indication: PRODUCT USED FOR UNKNOWN INDICATION
  5. SOLIFENACIN [Concomitant]
     Active Substance: SOLIFENACIN
     Indication: PRODUCT USED FOR UNKNOWN INDICATION
  6. COLEX KLYSMA [Concomitant]
     Active Substance: SODIUM PHOSPHATE, DIBASIC, ANHYDROUS\SODIUM PHOSPHATE, MONOBASIC
     Indication: PRODUCT USED FOR UNKNOWN INDICATION
  7. MADOPAR [Concomitant]
     Active Substance: BENSERAZIDE HYDROCHLORIDE\LEVODOPA
     Indication: PRODUCT USED FOR UNKNOWN INDICATION
  8. DUODOPA [Suspect]
     Active Substance: CARBIDOPA\LEVODOPA
     Dosage: MD: 4.0, CD: 3.0, ED: 1.0?MD 4.0, CD 3.5, ED 2.0
     Route: 050
     Dates: start: 2019
  9. PRAMIPEXOLE. [Concomitant]
     Active Substance: PRAMIPEXOLE
     Indication: PRODUCT USED FOR UNKNOWN INDICATION
  10. QUETIAPINE. [Concomitant]
     Active Substance: QUETIAPINE
     Indication: PRODUCT USED FOR UNKNOWN INDICATION
  11. FLAMINAL [Concomitant]
     Active Substance: SODIUM ALGINATE
     Indication: STOMA COMPLICATION
  12. MACROGOL [Concomitant]
     Active Substance: POLYETHYLENE GLYCOLS
     Indication: PRODUCT USED FOR UNKNOWN INDICATION
     Dosage: OCCASIONALLY

REACTIONS (22)
  - Listless [Not Recovered/Not Resolved]
  - Confusional state [Not Recovered/Not Resolved]
  - Constipation [Recovered/Resolved]
  - Bradyphrenia [Not Recovered/Not Resolved]
  - Mood altered [Not Recovered/Not Resolved]
  - Disinhibition [Not Recovered/Not Resolved]
  - Stoma site erythema [Not Recovered/Not Resolved]
  - Abdominal pain [Unknown]
  - Weight increased [Not Recovered/Not Resolved]
  - Malaise [Not Recovered/Not Resolved]
  - Fatigue [Recovered/Resolved]
  - Decreased appetite [Not Recovered/Not Resolved]
  - Bradykinesia [Not Recovered/Not Resolved]
  - Nausea [Not Recovered/Not Resolved]
  - Bipolar disorder [Not Recovered/Not Resolved]
  - Myalgia [Unknown]
  - Hyperparathyroidism [Recovered/Resolved]
  - Underdose [Not Recovered/Not Resolved]
  - Mania [Not Recovered/Not Resolved]
  - Decreased activity [Not Recovered/Not Resolved]
  - Stoma site reaction [Recovered/Resolved]
  - Stoma site inflammation [Recovered/Resolved]

NARRATIVE: CASE EVENT DATE: 2019
